FAERS Safety Report 23185449 (Version 1)
Quarter: 2023Q4

REPORT INFORMATION
  Report Type: Spontaneous
  Country: US (occurrence: None)
  Receive Date: 20231114
  Receipt Date: 20231114
  Transmission Date: 20240110
  Serious: Yes (unspecified)
  Sender: FDA-Public Use
  Company Number: None

PATIENT
  Age: 65 Year
  Sex: Female
  Weight: 61.65 kg

DRUGS (6)
  1. EZETIMIBE [Suspect]
     Active Substance: EZETIMIBE
     Indication: Blood cholesterol increased
     Dosage: 1 TABLET AT BEDTIME ORAL?
     Route: 048
     Dates: start: 20230623, end: 20231113
  2. ZETIA [Concomitant]
     Active Substance: EZETIMIBE
  3. PRAVASTATIN [Concomitant]
     Active Substance: PRAVASTATIN
  4. LATANOPROST [Concomitant]
     Active Substance: LATANOPROST
  5. VITAMINS [Concomitant]
     Active Substance: VITAMINS
  6. COENZYME Q10 [Concomitant]
     Active Substance: DIETARY SUPPLEMENT\UBIDECARENONE

REACTIONS (5)
  - Nasopharyngitis [None]
  - Oropharyngeal pain [None]
  - Insomnia [None]
  - Nasal congestion [None]
  - Malaise [None]

NARRATIVE: CASE EVENT DATE: 20231108
